FAERS Safety Report 5979299-6 (Version None)
Quarter: 2008Q4

REPORT INFORMATION
  Report Type: 
  Country: None (occurrence: None)
  Receive Date: 20081204
  Receipt Date: 20081121
  Transmission Date: 20090506
  Serious: Yes (Hospitalization, Other)
  Sender: FDA-Public Use
  Company Number: US-AMGEN-US320171

PATIENT
  Sex: Female
  Weight: 61.1 kg

DRUGS (7)
  1. PROCRIT [Suspect]
     Indication: HEPATITIS C
     Route: 058
     Dates: start: 20080805
  2. PEG-INTRON [Suspect]
     Indication: HEPATITIS C
     Route: 058
     Dates: start: 20080709
  3. REBETOL [Suspect]
     Indication: HEPATITIS C
     Route: 048
     Dates: start: 20080709
  4. PREVACID [Concomitant]
  5. GLIPIZIDE [Concomitant]
  6. HYDROXYZINE [Concomitant]
  7. NEUPOGEN [Concomitant]

REACTIONS (2)
  - ENCEPHALOPATHY [None]
  - NEUTROPENIA [None]
